FAERS Safety Report 9154942 (Version 1)
Quarter: 2013Q1

REPORT INFORMATION
  Report Type: Spontaneous
  Country: US (occurrence: US)
  Receive Date: 20130311
  Receipt Date: 20130311
  Transmission Date: 20140127
  Serious: No
  Sender: FDA-Public Use
  Company Number: US-ABBOTT-12P-163-0967273-00

PATIENT
  Sex: Female
  Weight: 74 kg

DRUGS (1)
  1. LUPRON DEPOT 11.25 MG [Suspect]
     Indication: UTERINE LEIOMYOMA
     Dates: start: 201204, end: 201207

REACTIONS (2)
  - Hot flush [Recovered/Resolved]
  - Amenorrhoea [Not Recovered/Not Resolved]
